FAERS Safety Report 9499750 (Version 1)
Quarter: 2013Q1

REPORT INFORMATION
  Report Type: Spontaneous
  Country: US (occurrence: None)
  Receive Date: 20130107
  Receipt Date: 20130107
  Transmission Date: 20140127
  Serious: No
  Sender: FDA-Public Use
  Company Number: PHEH2012US020856

PATIENT
  Sex: Female

DRUGS (3)
  1. GILENYA (FINGOLIMOD) CAPSULE [Suspect]
     Indication: MULTIPLE SCLEROSIS
     Route: 048
     Dates: start: 20120726
  2. GABAPENTIN (GABAPENTIN) [Concomitant]
  3. MECLIZINE (MECLOZINE) [Concomitant]

REACTIONS (1)
  - Liver function test abnormal [None]
